FAERS Safety Report 5567588-9 (Version None)
Quarter: 2007Q4

REPORT INFORMATION
  Report Type: 
  Country: None (occurrence: None)
  Receive Date: 20071219
  Receipt Date: 20071210
  Transmission Date: 20080405
  Serious: Yes (Other)
  Sender: FDA-Public Use
  Company Number: JP-PFIZER INC-2007103966

PATIENT
  Age: 71 Year
  Sex: Female

DRUGS (2)
  1. DALACIN S [Suspect]
     Indication: PYREXIA
     Route: 042
     Dates: start: 20071101, end: 20070101
  2. MODACIN [Suspect]
     Indication: PYREXIA
     Route: 042
     Dates: start: 20071101, end: 20070101

REACTIONS (2)
  - ACUTE GENERALISED EXANTHEMATOUS PUSTULOSIS [None]
  - RENAL DISORDER [None]
